FAERS Safety Report 7874176-8 (Version None)
Quarter: 2011Q4

REPORT INFORMATION
  Report Type: 
  Country: None (occurrence: None)
  Receive Date: 20111030
  Receipt Date: 20110516
  Transmission Date: 20120403
  Serious: No
  Sender: FDA-Public Use
  Company Number: US-AMGEN-USASP2011025146

PATIENT
  Age: 59 Year
  Sex: Female
  Weight: 53.515 kg

DRUGS (1)
  1. ENBREL [Suspect]
     Indication: RHEUMATOID ARTHRITIS
     Dosage: 50 ML, QWK

REACTIONS (1)
  - INJECTION SITE RASH [None]
